FAERS Safety Report 15937419 (Version 1)
Quarter: 2019Q1

REPORT INFORMATION
  Report Type: Spontaneous
  Country: US (occurrence: US)
  Receive Date: 20190208
  Receipt Date: 20190208
  Transmission Date: 20190417
  Serious: No
  Sender: FDA-Public Use
  Company Number: None

PATIENT
  Age: 64 Year
  Sex: Female
  Weight: 80.1 kg

DRUGS (2)
  1. ACETAMINOPHEN AND OXYCODONE HYDROCHLORIDE 325MG/10 MG [Suspect]
     Active Substance: ACETAMINOPHEN\OXYCODONE HYDROCHLORIDE
     Indication: PAIN
     Route: 048
     Dates: start: 20190117, end: 20190205
  2. ACETAMINOPHEN AND OXYCODONE HYDROCHLORIDE 325MG/10 MG [Suspect]
     Active Substance: ACETAMINOPHEN\OXYCODONE HYDROCHLORIDE
     Indication: ARTHRITIS
     Route: 048
     Dates: start: 20190117, end: 20190205

REACTIONS (2)
  - Migraine [None]
  - Drug ineffective [None]

NARRATIVE: CASE EVENT DATE: 20190117
